FAERS Safety Report 15040866 (Version 1)
Quarter: 2018Q2

REPORT INFORMATION
  Report Type: Spontaneous
  Country: None (occurrence: DE)
  Receive Date: 20180620
  Receipt Date: 20180620
  Transmission Date: 20180711
  Serious: Yes (Death)
  Sender: FDA-Public Use
  Company Number: DE-B. BRAUN MEDICAL INC.-2049737

PATIENT
  Age: 51 Year
  Sex: Male

DRUGS (3)
  1. HEPARIN SODIUM AND DEXTROSE [Suspect]
     Active Substance: HEPARIN SODIUM
     Indication: ANTICOAGULANT THERAPY
     Route: 042
  2. SUPRARENIN [Suspect]
     Active Substance: EPINEPHRINE
     Route: 042
     Dates: start: 20150713
  3. NOREPINEPHRINE. [Suspect]
     Active Substance: NOREPINEPHRINE
     Route: 042
     Dates: start: 20150711, end: 20150711

REACTIONS (4)
  - Respiratory failure [Fatal]
  - Retroperitoneal haemorrhage [Recovered/Resolved]
  - Stress cardiomyopathy [None]
  - Cardiomyopathy [Recovered/Resolved with Sequelae]

NARRATIVE: CASE EVENT DATE: 20150711
